FAERS Safety Report 14121677 (Version 1)
Quarter: 2017Q4

REPORT INFORMATION
  Report Type: Report from Study
  Country: US (occurrence: US)
  Receive Date: 20171024
  Receipt Date: 20171024
  Transmission Date: 20180321
  Serious: Yes (Other)
  Sender: FDA-Public Use
  Company Number: US-BAYER-2017-131253

PATIENT
  Age: 63 Year
  Sex: Male
  Weight: 77.1 kg

DRUGS (21)
  1. NEXAVAR [Suspect]
     Active Substance: SORAFENIB
     Indication: HEPATOCELLULAR CARCINOMA
     Dosage: UNK
     Dates: start: 201705
  2. NEXAVAR [Suspect]
     Active Substance: SORAFENIB
     Indication: HEPATOCELLULAR CARCINOMA
     Dosage: DAILY DOSE 600 MG
     Route: 048
     Dates: start: 20170623, end: 2017
  3. SPIRIVA [Concomitant]
     Active Substance: TIOTROPIUM BROMIDE MONOHYDRATE
  4. ASPIRINE [Concomitant]
     Active Substance: ASPIRIN
     Dosage: 1 TABLET DAILY
     Route: 048
  5. NORCO [Concomitant]
     Active Substance: ACETAMINOPHEN\HYDROCODONE BITARTRATE
  6. OMEPRAZOLE. [Concomitant]
     Active Substance: OMEPRAZOLE
     Dosage: 1 CAPSULE DAILY
  7. METOPROLOL SUCCINATE. [Concomitant]
     Active Substance: METOPROLOL SUCCINATE
     Dosage: 1 TABLET DAILY
  8. PROVENTIL HFA [Concomitant]
     Active Substance: ALBUTEROL SULFATE
     Dosage: 1 PUFF PRN INHALATION 4 TIMES DAILY
  9. ATORVASTATIN CALCIUM. [Concomitant]
     Active Substance: ATORVASTATIN CALCIUM
  10. LACTULOSE. [Concomitant]
     Active Substance: LACTULOSE
  11. LASIX [Concomitant]
     Active Substance: FUROSEMIDE
  12. SPIRONOLACTONE. [Concomitant]
     Active Substance: SPIRONOLACTONE
     Dosage: 1 TABLET DAILY
  13. ATORVASTATIN [Concomitant]
     Active Substance: ATORVASTATIN
     Dosage: 1 TABLET AT BEDTIME
     Route: 048
  14. MS CONTIN [Concomitant]
     Active Substance: MORPHINE SULFATE
     Route: 048
  15. FUROSEMIDE. [Concomitant]
     Active Substance: FUROSEMIDE
     Dosage: 1 TABLET DAILY
     Route: 048
  16. NEXAVAR [Suspect]
     Active Substance: SORAFENIB
     Indication: HEPATOCELLULAR CARCINOMA
     Dosage: 400 MG, BID
     Route: 048
     Dates: start: 2017, end: 2017
  17. SPIRIVA [Concomitant]
     Active Substance: TIOTROPIUM BROMIDE MONOHYDRATE
     Dosage: 1 CAPSULE INHALATION DAILY
  18. NEXAVAR [Suspect]
     Active Substance: SORAFENIB
     Indication: HEPATOCELLULAR CARCINOMA
     Dosage: 400 MG, BID
     Route: 048
     Dates: start: 2017, end: 2017
  19. NEXAVAR [Suspect]
     Active Substance: SORAFENIB
     Indication: HEPATOCELLULAR CARCINOMA
     Dosage: 400 MG, BID
     Route: 048
     Dates: start: 2017
  20. ALBUTEROL. [Concomitant]
     Active Substance: ALBUTEROL
     Dosage: 1 PUFF PRN, Q6H
  21. METOPROLOL TARTRATE. [Concomitant]
     Active Substance: METOPROLOL TARTRATE

REACTIONS (30)
  - Chest pain [None]
  - Off label use [None]
  - Hepatocellular carcinoma [None]
  - Pulmonary embolism [None]
  - Oedema peripheral [None]
  - General physical health deterioration [None]
  - Sinus congestion [None]
  - Somnolence [Recovered/Resolved]
  - Peripheral swelling [None]
  - Fatigue [Recovered/Resolved]
  - Fatigue [Recovered/Resolved]
  - Hypophagia [None]
  - Pain in extremity [None]
  - Deep vein thrombosis [None]
  - Tumour thrombosis [None]
  - Weight decreased [Not Recovered/Not Resolved]
  - Haemoglobin decreased [None]
  - Pain [None]
  - Foot fracture [None]
  - Arthralgia [None]
  - Pancreatitis relapsing [None]
  - Chills [None]
  - Dysgeusia [Not Recovered/Not Resolved]
  - Splenomegaly [None]
  - Cough [None]
  - Anaemia [None]
  - Fatigue [Not Recovered/Not Resolved]
  - Mood altered [None]
  - Diarrhoea [Not Recovered/Not Resolved]
  - Back pain [None]

NARRATIVE: CASE EVENT DATE: 201706
